FAERS Safety Report 8554560-X (Version None)
Quarter: 2012Q3

REPORT INFORMATION
  Report Type: 
  Country: None (occurrence: None)
  Receive Date: 20120726
  Receipt Date: 20120726
  Transmission Date: 20120928
  Serious: Yes (Other)
  Sender: FDA-Public Use
  Company Number: None

PATIENT
  Age: 57 Year
  Sex: Male
  Weight: 127.0072 kg

DRUGS (2)
  1. LISINOPRIL [Suspect]
     Dosage: ONCE DAILY
     Route: 048
  2. PATANASE [Suspect]
     Indication: RHINITIS ALLERGIC
     Dosage: 2 SPRAYS TWICE/DAY NASAL
     Route: 045
     Dates: start: 20120718, end: 20120721

REACTIONS (5)
  - LUNG DISORDER [None]
  - INFLUENZA LIKE ILLNESS [None]
  - PAIN IN EXTREMITY [None]
  - FATIGUE [None]
  - PAIN [None]
